FAERS Safety Report 23415183 (Version 2)
Quarter: 2024Q1

REPORT INFORMATION
  Report Type: Spontaneous
  Country: US (occurrence: US)
  Receive Date: 20240118
  Receipt Date: 20240313
  Transmission Date: 20240409
  Serious: Yes (Hospitalization, Other)
  Sender: FDA-Public Use
  Company Number: US-TEVA-VS-3134262

PATIENT
  Age: 16 Year
  Sex: Male

DRUGS (6)
  1. METHOTREXATE [Suspect]
     Active Substance: METHOTREXATE
     Indication: B-cell type acute leukaemia
     Route: 065
  2. PREDNISONE [Concomitant]
     Active Substance: PREDNISONE
     Indication: B-cell type acute leukaemia
     Route: 065
  3. ALLOPURINOL [Suspect]
     Active Substance: ALLOPURINOL
     Indication: B-cell type acute leukaemia
     Dosage: FURTHER DOSE DECREASED TO 50%
     Route: 065
  4. ALLOPURINOL [Suspect]
     Active Substance: ALLOPURINOL
     Indication: B-cell type acute leukaemia
     Dosage: 100MG DAILY (50 MG/M 2 ), FURTHER DOSE DECREASED TO 50%
     Route: 065
  5. MERCAPTOPURINE [Suspect]
     Active Substance: MERCAPTOPURINE
     Indication: B-cell type acute leukaemia
     Route: 065
  6. VINCRISTINE [Concomitant]
     Active Substance: VINCRISTINE
     Indication: B-cell type acute leukaemia
     Route: 065

REACTIONS (4)
  - Anaemia megaloblastic [Unknown]
  - Ocular icterus [Unknown]
  - Hyperbilirubinaemia [Unknown]
  - Hypertransaminasaemia [Unknown]
